FAERS Safety Report 25265655 (Version 1)
Quarter: 2025Q2

REPORT INFORMATION
  Report Type: Spontaneous
  Country: CL (occurrence: CL)
  Receive Date: 20250503
  Receipt Date: 20250503
  Transmission Date: 20250716
  Serious: Yes (Other)
  Sender: MACLEODS
  Company Number: CL-MLMSERVICE-20250416-PI482650-00129-1

PATIENT

DRUGS (1)
  1. DOXYCYCLINE [Suspect]
     Active Substance: DOXYCYCLINE
     Indication: Rosacea
     Route: 048

REACTIONS (2)
  - Oesophageal ulcer [Recovered/Resolved]
  - Pyrexia [Recovered/Resolved]
